FAERS Safety Report 6020615-7 (Version None)
Quarter: 2008Q4

REPORT INFORMATION
  Report Type: 
  Country: None (occurrence: None)
  Receive Date: 20081227
  Receipt Date: 20081216
  Transmission Date: 20090506
  Serious: Yes (Hospitalization)
  Sender: FDA-Public Use
  Company Number: US-SANOFI-SYNTHELABO-A03200805065

PATIENT
  Sex: Female

DRUGS (9)
  1. PLAVIX [Suspect]
     Indication: STENT PLACEMENT
     Dosage: UNK
     Route: 048
     Dates: start: 20070801, end: 20070901
  2. PLAVIX [Suspect]
     Indication: CATHETERISATION CARDIAC
     Dosage: UNK
     Route: 048
     Dates: start: 20070801, end: 20070901
  3. PLAVIX [Suspect]
     Indication: PERCUTANEOUS CORONARY INTERVENTION
     Dosage: UNK
     Route: 048
     Dates: start: 20070801, end: 20070901
  4. PLAVIX [Suspect]
     Route: 048
     Dates: start: 20081201
  5. PLAVIX [Suspect]
     Route: 048
     Dates: start: 20081201
  6. PLAVIX [Suspect]
     Route: 048
     Dates: start: 20081201
  7. ASPIRIN [Concomitant]
     Indication: DRUG USE FOR UNKNOWN INDICATION
     Route: 048
  8. COREG [Concomitant]
     Indication: DRUG USE FOR UNKNOWN INDICATION
     Route: 048
     Dates: start: 20070101
  9. COREG [Concomitant]
     Route: 048

REACTIONS (3)
  - CORONARY ARTERY OCCLUSION [None]
  - CORONARY ARTERY RESTENOSIS [None]
  - CORONARY ARTERY STENOSIS [None]
